FAERS Safety Report 21403944 (Version 2)
Quarter: 2022Q4

REPORT INFORMATION
  Report Type: Spontaneous
  Country: IT (occurrence: None)
  Receive Date: 20221003
  Receipt Date: 20221128
  Transmission Date: 20230113
  Serious: Yes (Death, Life-Threatening)
  Sender: FDA-Public Use
  Company Number: 2022A334480

PATIENT
  Age: 81 Year
  Sex: Female

DRUGS (1)
  1. ANDEXANET ALFA [Suspect]
     Active Substance: ANDEXANET ALFA
     Indication: Ill-defined disorder
     Dosage: 400.0MG ONCE/SINGLE ADMINISTRATION
     Route: 040

REACTIONS (2)
  - Cerebral mass effect [Unknown]
  - Off label use [Fatal]

NARRATIVE: CASE EVENT DATE: 20220425
